FAERS Safety Report 14430782 (Version 1)
Quarter: 2018Q1

REPORT INFORMATION
  Report Type: Spontaneous
  Country: US (occurrence: US)
  Receive Date: 20180123
  Receipt Date: 20180123
  Transmission Date: 20180509
  Serious: Yes (Disabling)
  Sender: FDA-Public Use
  Company Number: None

PATIENT
  Sex: Female
  Weight: 47.7 kg

DRUGS (4)
  1. GINGER SUPPLEMENT [Concomitant]
  2. HYDROXYZINE [Concomitant]
     Active Substance: HYDROXYZINE HYDROCHLORIDE
  3. SHAROBEL [Concomitant]
     Active Substance: NORETHINDRONE
  4. MIRALAX [Suspect]
     Active Substance: POLYETHYLENE GLYCOL 3350
     Indication: ENCOPRESIS
     Dosage: QUANTITY:3 TABLESPOON(S);?
     Route: 048

REACTIONS (8)
  - Depressed mood [None]
  - Anger [None]
  - Nervousness [None]
  - Anxiety [None]
  - Educational problem [None]
  - Screaming [None]
  - Dyslexia [None]
  - Attention deficit/hyperactivity disorder [None]

NARRATIVE: CASE EVENT DATE: 20030101
